FAERS Safety Report 14827124 (Version 1)
Quarter: 2018Q2

REPORT INFORMATION
  Report Type: Spontaneous
  Country: US (occurrence: US)
  Receive Date: 20180430
  Receipt Date: 20180430
  Transmission Date: 20180711
  Serious: No
  Sender: FDA-Public Use
  Company Number: US-ABBVIE-17K-163-1996614-00

PATIENT
  Age: 64 Year
  Sex: Female
  Weight: 58.11 kg

DRUGS (3)
  1. CREON [Suspect]
     Active Substance: PANCRELIPASE AMYLASE\PANCRELIPASE LIPASE\PANCRELIPASE PROTEASE
     Indication: PANCREATIC FAILURE
     Route: 048
     Dates: start: 201701
  2. CREON [Suspect]
     Active Substance: PANCRELIPASE AMYLASE\PANCRELIPASE LIPASE\PANCRELIPASE PROTEASE
     Dosage: ONE CAPSULE WITH EACH MEAL
     Route: 048
     Dates: start: 20170517, end: 20170524
  3. VALIUM [Concomitant]
     Active Substance: DIAZEPAM
     Indication: ABDOMINAL PAIN UPPER

REACTIONS (3)
  - Muscle spasms [Recovered/Resolved]
  - Diarrhoea [Recovering/Resolving]
  - Gastritis [Recovering/Resolving]

NARRATIVE: CASE EVENT DATE: 201705
